FAERS Safety Report 21140434 (Version 5)
Quarter: 2022Q4

REPORT INFORMATION
  Report Type: Spontaneous
  Country: CA (occurrence: CA)
  Receive Date: 20220728
  Receipt Date: 20221104
  Transmission Date: 20230113
  Serious: Yes (Other)
  Sender: FDA-Public Use
  Company Number: CA-CELLTRION INC.-2022CA008120

PATIENT

DRUGS (6)
  1. INFLECTRA [Suspect]
     Active Substance: INFLIXIMAB-DYYB
     Indication: Crohn^s disease
     Dosage: 1550 MG, EVERY 4 WEEKS
     Route: 042
     Dates: start: 20220525
  2. INFLECTRA [Suspect]
     Active Substance: INFLIXIMAB-DYYB
     Dosage: 1550 MG, EVERY 4 WEEKS
     Route: 042
     Dates: start: 20220620
  3. INFLECTRA [Suspect]
     Active Substance: INFLIXIMAB-DYYB
     Dosage: 1550 MG, EVERY 4 WEEKS
     Route: 042
  4. INFLECTRA [Suspect]
     Active Substance: INFLIXIMAB-DYYB
     Dosage: 1550 MG, EVERY 4 WEEKS
     Route: 042
     Dates: start: 20220830
  5. INFLECTRA [Suspect]
     Active Substance: INFLIXIMAB-DYYB
     Dosage: 1550 MG, EVERY 4 WEEKS
     Route: 042
     Dates: start: 20220830
  6. INFLECTRA [Suspect]
     Active Substance: INFLIXIMAB-DYYB
     Dosage: 1550 MG, EVERY 4 WEEKS
     Route: 042

REACTIONS (14)
  - Bronchitis bacterial [Unknown]
  - Sinusitis bacterial [Not Recovered/Not Resolved]
  - Off label use [Unknown]
  - Off label use [Unknown]
  - Off label use [Unknown]
  - Intentional product use issue [Unknown]
  - Acne [Unknown]
  - Rash macular [Unknown]
  - Blepharitis [Unknown]
  - Psoriasis [Not Recovered/Not Resolved]
  - Nasal congestion [Not Recovered/Not Resolved]
  - Mental disorder [Not Recovered/Not Resolved]
  - Illness [Not Recovered/Not Resolved]
  - Psychiatric symptom [Unknown]

NARRATIVE: CASE EVENT DATE: 20220101
